FAERS Safety Report 21025487 (Version 5)
Quarter: 2022Q3

REPORT INFORMATION
  Report Type: Report from Study
  Country: DE (occurrence: DE)
  Receive Date: 20220630
  Receipt Date: 20220911
  Transmission Date: 20221027
  Serious: Yes (Hospitalization)
  Sender: FDA-Public Use
  Company Number: DE-BIOGEN-2022BI01134829

PATIENT
  Age: 46 Year
  Sex: Female
  Weight: 52 kg

DRUGS (4)
  1. TYSABRI [Suspect]
     Active Substance: NATALIZUMAB
     Indication: Multiple sclerosis
     Dosage: TEMPORARILY INTERRUPTED ON 11 MAY 22?TYSABRI THERAPY WAS RESTARTED ON 03 AUG 22.
     Route: 050
  2. TYSABRI [Suspect]
     Active Substance: NATALIZUMAB
     Dosage: TYSABRI ADMINISTRATION PERFORMED 12-OCT-2021, 23-NOV-2021, 05-JAN-2022, 16-FEB-2022, 30-MAR-2022,...
     Route: 050
     Dates: start: 20180718
  3. PREDNISOLONE [Concomitant]
     Active Substance: PREDNISOLONE
     Indication: Hyperplasia adrenal
     Route: 050
     Dates: start: 2001
  4. SPIRONOLACTONE [Concomitant]
     Active Substance: SPIRONOLACTONE
     Indication: Hyperplasia adrenal
     Route: 050

REACTIONS (3)
  - Gastroenteritis [Recovered/Resolved]
  - Constipation [Unknown]
  - Prescribed underdose [Unknown]

NARRATIVE: CASE EVENT DATE: 20220621
